FAERS Safety Report 20947245 (Version 1)
Quarter: 2022Q2

REPORT INFORMATION
  Report Type: Spontaneous
  Country: US (occurrence: US)
  Receive Date: 20220610
  Receipt Date: 20220610
  Transmission Date: 20220721
  Serious: Yes (Other)
  Sender: FDA-Public Use
  Company Number: US-BRISTOL-MYERS SQUIBB COMPANY-2022-051494

PATIENT
  Age: 61 Year
  Sex: Female
  Weight: 96 kg

DRUGS (8)
  1. REVLIMID [Suspect]
     Active Substance: LENALIDOMIDE
     Indication: Plasma cell myeloma
     Dosage: 14 DAYS ON, 7 DAYS OFF
     Route: 048
     Dates: start: 20220429
  2. REVLIMID [Suspect]
     Active Substance: LENALIDOMIDE
     Dosage: AS DIRECTED
     Route: 048
     Dates: start: 20220420, end: 20220511
  3. REVLIMID [Suspect]
     Active Substance: LENALIDOMIDE
     Route: 048
     Dates: start: 20220511, end: 20220527
  4. REVLIMID [Suspect]
     Active Substance: LENALIDOMIDE
     Dosage: USED AS DIRECTED, REFILL-DIFFERENT PRESCRIBER
     Route: 048
     Dates: start: 20220527
  5. LEVOTHYROXINE SODIUM [Concomitant]
     Active Substance: LEVOTHYROXINE SODIUM
     Indication: Product used for unknown indication
     Dosage: ALTERNATE WITH 175 MCG
     Route: 048
     Dates: start: 20220420
  6. OLMESARTAN MEDOXOMIL [Concomitant]
     Active Substance: OLMESARTAN MEDOXOMIL
     Indication: Product used for unknown indication
     Route: 048
     Dates: start: 20220420
  7. GABAPENTIN [Concomitant]
     Active Substance: GABAPENTIN
     Indication: Product used for unknown indication
     Route: 048
     Dates: start: 20220420
  8. DEXAMETHASONE [Concomitant]
     Active Substance: DEXAMETHASONE
     Indication: Product used for unknown indication
     Dosage: INDICATED WITH REVLIMID, OKAY TO SHIP
     Route: 048
     Dates: start: 20220511

REACTIONS (1)
  - Neutropenia [Recovered/Resolved]

NARRATIVE: CASE EVENT DATE: 20220520
